FAERS Safety Report 22175715 (Version 1)
Quarter: 2023Q2

REPORT INFORMATION
  Report Type: Spontaneous
  Country: US (occurrence: US)
  Receive Date: 20230405
  Receipt Date: 20230405
  Transmission Date: 20230722
  Serious: No
  Sender: FDA-Public Use
  Company Number: US-BRISTOL-MYERS SQUIBB COMPANY-2023-048462

PATIENT
  Age: 77 Year
  Sex: Female

DRUGS (1)
  1. POMALYST [Suspect]
     Active Substance: POMALIDOMIDE
     Indication: Plasma cell myeloma
     Dosage: FREQUENCY-QD X 21 DAYS THEN 7 DAYS OFF
     Route: 048
     Dates: start: 20230307

REACTIONS (5)
  - Insomnia [Unknown]
  - Erythema [Unknown]
  - Tremor [Unknown]
  - Muscle spasms [Unknown]
  - Confusional state [Unknown]
